FAERS Safety Report 9300100 (Version 1)
Quarter: 2013Q2

REPORT INFORMATION
  Report Type: Spontaneous
  Country: US (occurrence: US)
  Receive Date: 20130521
  Receipt Date: 20130521
  Transmission Date: 20140414
  Serious: No
  Sender: FDA-Public Use
  Company Number: US-MYLANLABS-2012S1011662

PATIENT
  Age: 53 Year
  Sex: Female

DRUGS (7)
  1. AMITRIPTYLINE HYDROCHLORIDE TABLETS, USP [Suspect]
     Indication: NEUROPATHY PERIPHERAL
     Route: 048
  2. AMITRIPTYLINE HYDROCHLORIDE TABLETS, USP [Suspect]
     Indication: OFF LABEL USE
     Route: 048
  3. MELOXICAM [Concomitant]
     Route: 048
  4. CYMBALTA [Concomitant]
     Route: 048
  5. DEXILANT [Concomitant]
     Route: 048
  6. LOVASTATIN [Concomitant]
     Route: 048
  7. LEVOTHYROXINE [Concomitant]
     Route: 048

REACTIONS (2)
  - Drug ineffective for unapproved indication [Not Recovered/Not Resolved]
  - Neuropathy peripheral [Not Recovered/Not Resolved]
